FAERS Safety Report 7370515-5 (Version None)
Quarter: 2011Q1

REPORT INFORMATION
  Report Type: 
  Country: None (occurrence: None)
  Receive Date: 20110314
  Receipt Date: 20110307
  Transmission Date: 20110831
  Serious: Yes (Other)
  Sender: FDA-Public Use
  Company Number: GB-ACCORD-008399

PATIENT
  Age: 50 Year
  Sex: Female
  Weight: 99 kg

DRUGS (5)
  1. AMOXICILLIN [Concomitant]
  2. AMLODIPINE [Concomitant]
  3. BENDROFLUMETHIAZIDE(BENDROFLUMETHIAZIDE) [Concomitant]
  4. SIMVASTATIN [Suspect]
     Indication: PRODUCT USED FOR UNKNOWN INDICATION
     Dates: start: 20110201
  5. ESTRADIOL [Concomitant]

REACTIONS (3)
  - PRURITUS [None]
  - ERYTHEMA [None]
  - OEDEMA PERIPHERAL [None]
